FAERS Safety Report 11224422 (Version 3)
Quarter: 2016Q3

REPORT INFORMATION
  Report Type: Spontaneous
  Country: US (occurrence: US)
  Receive Date: 20150629
  Receipt Date: 20160715
  Transmission Date: 20161109
  Serious: Yes (Death, Hospitalization, Other)
  Sender: FDA-Public Use
  Company Number: US-TEVA-573540USA

PATIENT
  Age: 41 Year
  Sex: Female

DRUGS (6)
  1. LITHIUM. [Concomitant]
     Active Substance: LITHIUM
  2. VALPROIC ACID. [Concomitant]
     Active Substance: VALPROIC ACID
     Route: 048
  3. PARACETAMOL [Concomitant]
     Active Substance: ACETAMINOPHEN
  4. METHAMPHETAMINE [Concomitant]
     Active Substance: METHAMPHETAMINE
  5. CARBAMAZEPINE. [Suspect]
     Active Substance: CARBAMAZEPINE
     Route: 048
  6. ACETYLSALICYLIC ACID [Concomitant]
     Active Substance: ASPIRIN

REACTIONS (9)
  - Bundle branch block right [Fatal]
  - Acidosis [Fatal]
  - Unresponsive to stimuli [Fatal]
  - Haemodynamic instability [Fatal]
  - Brain injury [Fatal]
  - Overdose [Fatal]
  - Cardiac arrest [Fatal]
  - Hypotension [Fatal]
  - Compartment syndrome [Fatal]
